FAERS Safety Report 19312997 (Version 2)
Quarter: 2021Q4

REPORT INFORMATION
  Report Type: Spontaneous
  Country: GB (occurrence: GB)
  Receive Date: 20210527
  Receipt Date: 20211227
  Transmission Date: 20220304
  Serious: Yes (Other)
  Sender: FDA-Public Use
  Company Number: GB-MHRA-EYC 00250775

PATIENT
  Age: 21 Year
  Sex: Female
  Weight: 52.16 kg

DRUGS (1)
  1. CODEINE [Suspect]
     Active Substance: CODEINE
     Indication: Dysmenorrhoea
     Dosage: 15MG PER TABLET (X2 TABLETS TAKEN)
     Route: 048
     Dates: start: 20210514, end: 20210515

REACTIONS (2)
  - Abdominal pain [Recovered/Resolved]
  - Abdominal pain [Recovered/Resolved]

NARRATIVE: CASE EVENT DATE: 20210514
